FAERS Safety Report 6187141-6 (Version None)
Quarter: 2009Q2

REPORT INFORMATION
  Report Type: 
  Country: None (occurrence: None)
  Receive Date: 20090508
  Receipt Date: 20090320
  Transmission Date: 20091009
  Serious: Yes (Hospitalization)
  Sender: FDA-Public Use
  Company Number: WAES 0903USA04019

PATIENT
  Age: 78 Year
  Sex: Female

DRUGS (2)
  1. JANUMET [Suspect]
     Indication: DIABETES MELLITUS
     Dosage: PO
     Route: 048
  2. JANUVIA [Concomitant]

REACTIONS (1)
  - HYPOGLYCAEMIA [None]
